FAERS Safety Report 7277185-5 (Version None)
Quarter: 2011Q1

REPORT INFORMATION
  Report Type: 
  Country: None (occurrence: None)
  Receive Date: 20110202
  Receipt Date: 20110202
  Transmission Date: 20110831
  Serious: Yes (Hospitalization, Other)
  Sender: FDA-Public Use
  Company Number: None

PATIENT
  Sex: Female
  Weight: 29.4838 kg

DRUGS (1)
  1. OCELLA DRSP 3MG, EE .03MG BAYER HEALTHCARE PHARMACEUTICALS [Suspect]
     Indication: CONTRACEPTION
     Dosage: 1 TABLET ONCE PER DAY PO
     Route: 048
     Dates: start: 20090801, end: 20100305

REACTIONS (3)
  - GASTRIC DISORDER [None]
  - GALLBLADDER DISORDER [None]
  - CHOLELITHIASIS [None]
